FAERS Safety Report 7352404 (Version 10)
Quarter: 2014Q2

REPORT INFORMATION
  Report Type: Spontaneous
  Country: US (occurrence: US)
  Receive Date: 20100412
  Receipt Date: 20140401
  Transmission Date: 20141212
  Serious: Yes (Hospitalization, Other)
  Sender: FDA-Public Use
  Company Number: US-ALEXION-A201000333

PATIENT
  Age: 53 Year
  Sex: Male

DRUGS (14)
  1. SOLIRIS 300MG [Suspect]
     Indication: PAROXYSMAL NOCTURNAL HAEMOGLOBINURIA
     Dosage: 600 MG, QW
     Route: 042
     Dates: start: 20090318, end: 20090408
  2. SOLIRIS 300MG [Suspect]
     Dosage: 600 MG, QW X4W
     Route: 042
     Dates: start: 20090507, end: 200905
  3. SOLIRIS 300MG [Suspect]
     Dosage: 900 MG, Q2W
     Route: 042
     Dates: start: 200906
  4. AMBIEN [Concomitant]
     Indication: INSOMNIA
     Dosage: 10 MG, QHS, PRN
     Route: 048
  5. BENAZEPRIL [Concomitant]
     Dosage: 40 MG, UNK
  6. COREG [Concomitant]
     Dosage: 20 MG, QD
     Route: 048
  7. DIOVAN                             /01319601/ [Concomitant]
     Dosage: 320 MG, UNK
  8. VITAMIN D                          /00107901/ [Concomitant]
     Dosage: 50000 IU, 2/W X24
     Route: 048
  9. FOLIC ACID [Concomitant]
     Dosage: 1 MG, UNK
  10. FUROSEMIDE [Concomitant]
     Dosage: 80 MG, QD
     Route: 048
  11. LOTENSIN                           /00909102/ [Concomitant]
     Route: 048
  12. METOPROLOL TARTRATE [Concomitant]
     Dosage: 100 MG, UNK
  13. NORVASC                            /00972401/ [Concomitant]
     Route: 048
  14. POTASSIUM CHLORIDE [Concomitant]
     Dosage: 20 MEQ, QD
     Route: 048

REACTIONS (24)
  - Nephropathy [Unknown]
  - Liver disorder [Unknown]
  - Tendonitis [Not Recovered/Not Resolved]
  - Erectile dysfunction [Unknown]
  - Paroxysmal nocturnal haemoglobinuria [Not Recovered/Not Resolved]
  - Condition aggravated [Recovering/Resolving]
  - Influenza [Recovered/Resolved]
  - Erythema [Recovering/Resolving]
  - Joint warmth [Recovering/Resolving]
  - Pain [Unknown]
  - Post procedural contusion [Unknown]
  - Oedema peripheral [Not Recovered/Not Resolved]
  - Haemoglobinuria [Not Recovered/Not Resolved]
  - Weight decreased [Unknown]
  - Limb discomfort [Unknown]
  - Oropharyngeal pain [Unknown]
  - Herpes zoster [Not Recovered/Not Resolved]
  - Contusion [Not Recovered/Not Resolved]
  - Skin discolouration [Not Recovered/Not Resolved]
  - Aspiration joint abnormal [Not Recovered/Not Resolved]
  - Haemolysis [Unknown]
  - Back pain [Unknown]
  - Abdominal pain [Unknown]
  - Dysphagia [Unknown]
